FAERS Safety Report 5962251-4 (Version None)
Quarter: 2008Q4

REPORT INFORMATION
  Report Type: 
  Country: None (occurrence: None)
  Receive Date: 20081121
  Receipt Date: 20081120
  Transmission Date: 20090506
  Serious: Yes (Death)
  Sender: FDA-Public Use
  Company Number: CO-B.I. PHARMACEUTICALS,INC./RIDGEFIELD-2008-RA-00056RA

PATIENT
  Age: 62 Year
  Sex: Male

DRUGS (3)
  1. TIOTROPIUM INHALATION POWDER [Suspect]
     Indication: CHRONIC OBSTRUCTIVE PULMONARY DISEASE
     Dosage: 18MCG
     Route: 055
     Dates: start: 20080501
  2. ASPIRIN [Concomitant]
  3. DIGOXINE [Concomitant]

REACTIONS (1)
  - PULMONARY INFARCTION [None]
